FAERS Safety Report 5912498-8 (Version None)
Quarter: 2008Q4

REPORT INFORMATION
  Report Type: 
  Country: None (occurrence: None)
  Receive Date: 20081008
  Receipt Date: 20081001
  Transmission Date: 20090506
  Serious: Yes (Death)
  Sender: FDA-Public Use
  Company Number: GB-JNJCH-2008025776

PATIENT

DRUGS (3)
  1. ACETYLSALICYLIC ACID SRT [Suspect]
     Indication: ANTIPLATELET THERAPY
     Dosage: TEXT:75 MG OD
     Route: 065
  2. CLOPIDOGREL [Suspect]
     Indication: ANTIPLATELET THERAPY
     Dosage: TEXT:75 MG OD
     Route: 065
  3. DIPYRIDAMOLE [Suspect]
     Indication: ANTIPLATELET THERAPY
     Dosage: TEXT:200 MG BD
     Route: 065

REACTIONS (2)
  - ACUTE MYELOID LEUKAEMIA [None]
  - UPPER GASTROINTESTINAL HAEMORRHAGE [None]
